FAERS Safety Report 16564161 (Version 2)
Quarter: 2019Q3

REPORT INFORMATION
  Report Type: Spontaneous
  Country: BE (occurrence: BE)
  Receive Date: 20190712
  Receipt Date: 20190919
  Transmission Date: 20191004
  Serious: Yes (Other)
  Sender: FDA-Public Use
  Company Number: BE-BRISTOL-MYERS SQUIBB COMPANY-BMS-2019-066611

PATIENT
  Sex: Male
  Weight: 55 kg

DRUGS (1)
  1. NIVOLUMAB [Suspect]
     Active Substance: NIVOLUMAB
     Indication: ADENOCARCINOMA GASTRIC
     Dosage: 3 MILLIGRAM/KILOGRAM
     Route: 065
     Dates: start: 20171123, end: 20180412

REACTIONS (2)
  - Intentional product use issue [Unknown]
  - Lung infiltration [Unknown]
